FAERS Safety Report 13394919 (Version 1)
Quarter: 2017Q2

REPORT INFORMATION
  Report Type: Report from Study
  Country: JP (occurrence: JP)
  Receive Date: 20170403
  Receipt Date: 20170403
  Transmission Date: 20170830
  Serious: Yes (Other)
  Sender: FDA-Public Use
  Company Number: JP-ROCHE-1908886

PATIENT

DRUGS (2)
  1. BEVACIZUMAB [Suspect]
     Active Substance: BEVACIZUMAB
     Indication: NON-SMALL CELL LUNG CANCER
     Route: 065
  2. TS-1 [Suspect]
     Active Substance: GIMERACIL\OTERACIL\TEGAFUR
     Indication: NON-SMALL CELL LUNG CANCER
     Route: 048

REACTIONS (8)
  - Mucosal inflammation [Unknown]
  - Diarrhoea [Unknown]
  - Fatigue [Unknown]
  - Neutropenia [Unknown]
  - Peripheral sensory neuropathy [Unknown]
  - Anaemia [Unknown]
  - Decreased appetite [Unknown]
  - Nausea [Unknown]
